FAERS Safety Report 20789888 (Version 1)
Quarter: 2022Q2

REPORT INFORMATION
  Report Type: Spontaneous
  Country: US (occurrence: US)
  Receive Date: 20220505
  Receipt Date: 20220505
  Transmission Date: 20220720
  Serious: No
  Sender: FDA-Public Use
  Company Number: US-GALDERMA-US2022004842

PATIENT

DRUGS (1)
  1. DIFFERIN GEL [Suspect]
     Active Substance: ADAPALENE
     Indication: Acne
     Dosage: 1 DOSAGE FORM
     Route: 061

REACTIONS (8)
  - Rash macular [Unknown]
  - Skin exfoliation [Unknown]
  - Eye contusion [Unknown]
  - Contusion [Unknown]
  - Erythema [Unknown]
  - Skin discolouration [Unknown]
  - Skin burning sensation [Unknown]
  - Pain of skin [Unknown]
